FAERS Safety Report 19452815 (Version 2)
Quarter: 2021Q3

REPORT INFORMATION
  Report Type: Spontaneous
  Country: US (occurrence: US)
  Receive Date: 20210623
  Receipt Date: 20210819
  Transmission Date: 20211014
  Serious: No
  Sender: FDA-Public Use
  Company Number: US-ASTRAZENECA-2021A477942

PATIENT
  Age: 22873 Day
  Sex: Female
  Weight: 126.1 kg

DRUGS (2)
  1. BYDUREON BCISE [Suspect]
     Active Substance: EXENATIDE
     Indication: DIABETES MELLITUS
     Route: 058
     Dates: start: 20210526
  2. BYDUREON [Suspect]
     Active Substance: EXENATIDE
     Route: 058
     Dates: end: 202105

REACTIONS (3)
  - Injection site extravasation [Recovered/Resolved with Sequelae]
  - Incorrect dose administered [Unknown]
  - Wrong technique in device usage process [Unknown]

NARRATIVE: CASE EVENT DATE: 20210521
